FAERS Safety Report 25124686 (Version 3)
Quarter: 2025Q3

REPORT INFORMATION
  Report Type: Report from Study
  Country: US (occurrence: US)
  Receive Date: 20250326
  Receipt Date: 20250805
  Transmission Date: 20251021
  Serious: No
  Sender: ASTELLAS
  Company Number: US-ASTELLAS-2025-AER-015492

PATIENT
  Sex: Female

DRUGS (2)
  1. FEZOLINETANT [Suspect]
     Active Substance: FEZOLINETANT
     Indication: Menopausal symptoms
     Dosage: 45 MG ONCE DAILY
     Route: 048
     Dates: start: 202312, end: 20250224
  2. FEZOLINETANT [Suspect]
     Active Substance: FEZOLINETANT
     Dosage: 45 MG ONCE DAILY
     Route: 048
     Dates: start: 20250509

REACTIONS (1)
  - Liver function test abnormal [Recovered/Resolved]
